FAERS Safety Report 4555740-0 (Version None)
Quarter: 2005Q1

REPORT INFORMATION
  Report Type: 
  Country: None (occurrence: None)
  Receive Date: 20050112
  Receipt Date: 20040105
  Transmission Date: 20050727
  Serious: Yes (Death)
  Sender: FDA-Public Use
  Company Number: 204028

PATIENT
  Age: 68 Year
  Sex: Male

DRUGS (1)
  1. ACTIVASE [Suspect]
     Indication: CEREBROVASCULAR ACCIDENT
     Dosage: 100 MG, SINGLE
     Dates: start: 20010101, end: 20010101

REACTIONS (1)
  - HAEMORRHAGE [None]
